FAERS Safety Report 9213246 (Version 1)
Quarter: 2013Q2

REPORT INFORMATION
  Report Type: Spontaneous
  Country: US (occurrence: None)
  Receive Date: 20130404
  Receipt Date: 20130404
  Transmission Date: 20140414
  Serious: Yes (Other)
  Sender: FDA-Public Use
  Company Number: None

PATIENT
  Age: 50 Year
  Sex: Female
  Weight: 102.06 kg

DRUGS (2)
  1. DEPAKOTE [Suspect]
     Dosage: 125 MG  ONE IN MORN?
     Dates: start: 20130320
  2. DIVALPROEX [Suspect]
     Dosage: ONE IN EVENING

REACTIONS (5)
  - Nausea [None]
  - Palpitations [None]
  - Anxiety [None]
  - Thinking abnormal [None]
  - Alopecia [None]
